FAERS Safety Report 7376567-0 (Version None)
Quarter: 2011Q1

REPORT INFORMATION
  Report Type: 
  Country: None (occurrence: None)
  Receive Date: 20110325
  Receipt Date: 20110318
  Transmission Date: 20110831
  Serious: Yes (Death)
  Sender: FDA-Public Use
  Company Number: DE-GENZYME-RENA-1001133

PATIENT
  Sex: Female
  Weight: 52.7 kg

DRUGS (5)
  1. EPOGEN [Concomitant]
     Indication: PRODUCT USED FOR UNKNOWN INDICATION
  2. RENVELA [Suspect]
     Indication: HYPERPHOSPHATAEMIA
     Dosage: 0.8 G, QD
  3. LOOP DIURETIC [Concomitant]
     Indication: PRODUCT USED FOR UNKNOWN INDICATION
  4. IRON SUBSITITUTION [Concomitant]
     Indication: PRODUCT USED FOR UNKNOWN INDICATION
  5. COLECALCIFEROL [Concomitant]
     Indication: VITAMIN D
     Dosage: 20000 IU, Q2W

REACTIONS (1)
  - DEATH [None]
